FAERS Safety Report 5484438-X (Version None)
Quarter: 2007Q4

REPORT INFORMATION
  Report Type: 
  Country: None (occurrence: None)
  Receive Date: 20071012
  Receipt Date: 20071008
  Transmission Date: 20080405
  Serious: Yes (Life-Threatening)
  Sender: FDA-Public Use
  Company Number: FR-GENENTECH-249330

PATIENT
  Sex: Female
  Weight: 74.83 kg

DRUGS (3)
  1. RITUXIMAB [Suspect]
     Indication: DRUG USE FOR UNKNOWN INDICATION
  2. ASPARAGINASE [Suspect]
     Indication: DRUG USE FOR UNKNOWN INDICATION
     Dosage: 10000 IU, UNK
     Dates: start: 20070920
  3. VORICONAZOLE [Concomitant]
     Indication: DRUG USE FOR UNKNOWN INDICATION

REACTIONS (1)
  - PANCREATITIS [None]
